FAERS Safety Report 21972585 (Version 1)
Quarter: 2023Q1

REPORT INFORMATION
  Report Type: Spontaneous
  Country: PL (occurrence: PL)
  Receive Date: 20230209
  Receipt Date: 20230209
  Transmission Date: 20230418
  Serious: Yes (Other)
  Sender: FDA-Public Use
  Company Number: PL-AMGEN-POLSP2023020467

PATIENT

DRUGS (2)
  1. ADALIMUMAB [Suspect]
     Active Substance: ADALIMUMAB
     Indication: Psoriasis
     Dosage: UNK
     Route: 065
  2. ADALIMUMAB [Suspect]
     Active Substance: ADALIMUMAB
     Indication: Psoriatic arthropathy

REACTIONS (10)
  - Burn oral cavity [Unknown]
  - Angular cheilitis [Unknown]
  - Denture stomatitis [Unknown]
  - Stomatitis [Unknown]
  - Gingival bleeding [Unknown]
  - Plicated tongue [Unknown]
  - Tongue discolouration [Unknown]
  - Nicotinic stomatitis [Unknown]
  - Tongue geographic [Unknown]
  - Oral macule [Unknown]
